FAERS Safety Report 5822559-X (Version None)
Quarter: 2008Q3

REPORT INFORMATION
  Report Type: 
  Country: None (occurrence: None)
  Receive Date: 20080725
  Receipt Date: 20071220
  Transmission Date: 20090109
  Serious: No
  Sender: FDA-Public Use
  Company Number: US-AMGEN-KDL257941

PATIENT
  Sex: Male
  Weight: 68.1 kg

DRUGS (3)
  1. PROCRIT [Suspect]
     Indication: RENAL FAILURE CHRONIC
     Route: 058
     Dates: start: 19940101
  2. PROCRIT [Suspect]
     Route: 058
     Dates: start: 19940101
  3. IMMUNOSUPPRESSANTS [Concomitant]
     Dates: start: 19940101

REACTIONS (2)
  - BLOOD CREATININE INCREASED [None]
  - HAEMOGLOBIN DECREASED [None]
